FAERS Safety Report 8955983 (Version 1)
Quarter: 2012Q4

REPORT INFORMATION
  Report Type: 
  Country: US (occurrence: US)
  Receive Date: 20121210
  Receipt Date: 20121210
  Transmission Date: 20130627
  Serious: Yes (Other)
  Sender: FDA-Public Use
  Company Number: US-BAYER-2012-129154

PATIENT
  Age: 69 Year
  Sex: Female
  Weight: 77 kg

DRUGS (3)
  1. ALEVE CAPLET/TABLET,MIDOL EXTENDED RELIEF CAPLET [Suspect]
     Dosage: 2 UNK, UNK
     Route: 048
     Dates: start: 20121204, end: 20121204
  2. ANTIHYPERTENSIVES [Interacting]
  3. HYDROCHLOROTHIAZIDE [Concomitant]

REACTIONS (8)
  - Dysstasia [Recovered/Resolved]
  - Cognitive disorder [Recovered/Resolved]
  - Feeling abnormal [Recovered/Resolved]
  - Asthenia [Recovered/Resolved]
  - Dizziness [Recovered/Resolved]
  - Nausea [Recovered/Resolved]
  - Vomiting [Recovered/Resolved]
  - Drug interaction [None]
